FAERS Safety Report 19705594 (Version 2)
Quarter: 2021Q3

REPORT INFORMATION
  Report Type: Spontaneous
  Country: US (occurrence: US)
  Receive Date: 20210817
  Receipt Date: 20210828
  Transmission Date: 20211014
  Serious: Yes (Other)
  Sender: FDA-Public Use
  Company Number: US-AMGEN-USASP2021125113

PATIENT
  Age: 51 Year
  Sex: Female

DRUGS (2)
  1. OTEZLA [Suspect]
     Active Substance: APREMILAST
     Indication: OFF LABEL USE
  2. OTEZLA [Suspect]
     Active Substance: APREMILAST
     Indication: ANKYLOSING SPONDYLITIS
     Dosage: 30 MILLIGRAM, BID
     Route: 048
     Dates: start: 20210406

REACTIONS (3)
  - Ankylosing spondylitis [Not Recovered/Not Resolved]
  - Sjogren^s syndrome [Unknown]
  - Off label use [Unknown]

NARRATIVE: CASE EVENT DATE: 2021
